FAERS Safety Report 9527993 (Version 2)
Quarter: 2013Q3

REPORT INFORMATION
  Report Type: Spontaneous
  Country: GB (occurrence: None)
  Receive Date: 20130913
  Receipt Date: 20130920
  Transmission Date: 20140515
  Serious: Yes (Hospitalization)
  Sender: FDA-Public Use
  Company Number: GB-JNJFOC-20130902187

PATIENT
  Age: 79 Year
  Sex: Male

DRUGS (1)
  1. DECITABINE [Suspect]
     Indication: MYELODYSPLASTIC SYNDROME
     Route: 042
     Dates: start: 20130708, end: 20130712

REACTIONS (2)
  - Gastrointestinal haemorrhage [None]
  - Faeces discoloured [None]
